FAERS Safety Report 5764401-1 (Version None)
Quarter: 2008Q2

REPORT INFORMATION
  Report Type: 
  Country: None (occurrence: None)
  Receive Date: 20080605
  Receipt Date: 20080527
  Transmission Date: 20081010
  Serious: Yes (Other)
  Sender: FDA-Public Use
  Company Number: TPA2008A00798

PATIENT
  Age: 71 Year
  Sex: Female
  Weight: 76.2043 kg

DRUGS (5)
  1. ACTOS [Suspect]
     Indication: TYPE 2 DIABETES MELLITUS
     Dosage: 45 MG, 1 IN 1 D, PER ORAL
     Route: 048
     Dates: start: 20000527, end: 20080401
  2. TOPROL-XL [Concomitant]
  3. AMARYL [Concomitant]
  4. AVALIDE [Concomitant]
  5. LANTUS [Concomitant]

REACTIONS (8)
  - ABASIA [None]
  - ANKLE FRACTURE [None]
  - FALL [None]
  - FIBULA FRACTURE [None]
  - FOOT FRACTURE [None]
  - PAIN IN EXTREMITY [None]
  - RIB FRACTURE [None]
  - TIBIA FRACTURE [None]
